FAERS Safety Report 19399562 (Version 4)
Quarter: 2022Q1

REPORT INFORMATION
  Report Type: Spontaneous
  Country: US (occurrence: US)
  Receive Date: 20210610
  Receipt Date: 20220201
  Transmission Date: 20220423
  Serious: Yes (Hospitalization)
  Sender: FDA-Public Use
  Company Number: US-SA-SAC20210608001116

PATIENT
  Age: 51 Year
  Sex: Female

DRUGS (10)
  1. DUPIXENT [Suspect]
     Active Substance: DUPILUMAB
     Indication: Rhinitis
     Dosage: 300 MG, QOW
     Route: 058
     Dates: start: 20200824
  2. DUPIXENT [Suspect]
     Active Substance: DUPILUMAB
     Indication: Asthma
  3. AUGMENTIN [Concomitant]
     Active Substance: AMOXICILLIN\CLAVULANATE POTASSIUM
  4. FAMOTIDINE [Concomitant]
     Active Substance: FAMOTIDINE
  5. FENTANYL [Concomitant]
     Active Substance: FENTANYL
  6. HYDRALAZINE [Concomitant]
     Active Substance: HYDRALAZINE HYDROCHLORIDE
  7. LEVAQUIN [Concomitant]
     Active Substance: LEVOFLOXACIN
  8. RESCUE [Concomitant]
     Dosage: RELIEVER, INHALER A COUPLE TIMES PER DAY
     Route: 055
  9. AUGMENTIN [Concomitant]
     Active Substance: AMOXICILLIN\CLAVULANATE POTASSIUM
  10. FOLIC ACID [Concomitant]
     Active Substance: FOLIC ACID

REACTIONS (7)
  - Retinal detachment [Unknown]
  - Asthma [Unknown]
  - Impaired quality of life [Unknown]
  - Arthralgia [Unknown]
  - Product use in unapproved indication [Unknown]
  - Product use issue [Unknown]
  - Off label use [Unknown]

NARRATIVE: CASE EVENT DATE: 20200824
